FAERS Safety Report 7552280-1 (Version None)
Quarter: 2011Q2

REPORT INFORMATION
  Report Type: 
  Country: None (occurrence: None)
  Receive Date: 20110616
  Receipt Date: 20050228
  Transmission Date: 20111010
  Serious: Yes (Hospitalization)
  Sender: FDA-Public Use
  Company Number: PHHO2005JP01470

PATIENT
  Sex: Female

DRUGS (2)
  1. LOCHOLEST [Suspect]
     Indication: HYPERCHOLESTEROLAEMIA
     Dosage: 20 MG, QD
     Dates: start: 20000831
  2. ATELEC [Concomitant]
     Indication: HYPERTENSION

REACTIONS (3)
  - THIRST [None]
  - DIABETES MELLITUS [None]
  - POLLAKIURIA [None]
